FAERS Safety Report 9343772 (Version 1)
Quarter: 2013Q2

REPORT INFORMATION
  Report Type: Spontaneous
  Country: US (occurrence: US)
  Receive Date: 20130612
  Receipt Date: 20130612
  Transmission Date: 20140414
  Serious: Yes (Other)
  Sender: FDA-Public Use
  Company Number: US-JNJFOC-20130523007

PATIENT
  Sex: Male
  Weight: 68.04 kg

DRUGS (1)
  1. CONCERTA [Suspect]
     Indication: ATTENTION DEFICIT/HYPERACTIVITY DISORDER
     Route: 048
     Dates: start: 2009

REACTIONS (2)
  - Alcohol poisoning [Not Recovered/Not Resolved]
  - Frustration [Not Recovered/Not Resolved]
